FAERS Safety Report 8607402-8 (Version None)
Quarter: 2012Q3

REPORT INFORMATION
  Report Type: 
  Country: None (occurrence: None)
  Receive Date: 20120821
  Receipt Date: 20120815
  Transmission Date: 20120928
  Serious: Yes (Other)
  Sender: FDA-Public Use
  Company Number: US-AMGEN-USASP2012038663

PATIENT
  Age: 65 Year
  Sex: Female

DRUGS (22)
  1. TRAMADOL HCL [Concomitant]
     Indication: HEADACHE
     Dosage: 50 MG, QD
     Route: 048
     Dates: start: 20110507
  2. ZOFRAN [Concomitant]
     Dosage: 4 MG, PRN
     Route: 048
     Dates: start: 20110130
  3. NYSTATIN [Concomitant]
     Dosage: 100000 IU, PRN
     Route: 061
     Dates: start: 20120130
  4. VIACTIV                            /00751501/ [Concomitant]
     Dosage: UNK UNK, BID
     Dates: start: 20110714
  5. MECLIZINE [Concomitant]
     Indication: DIZZINESS
     Dosage: 25 MG, TID
     Route: 048
     Dates: start: 20110527
  6. ASPIRIN [Concomitant]
     Dosage: 81 MG, QD
     Route: 048
     Dates: start: 20110202
  7. AMLODIPINE [Concomitant]
     Dosage: 5 MG, BID
     Route: 048
     Dates: start: 20110202
  8. AMBIEN [Concomitant]
     Dosage: 10 MG, PRN
     Route: 048
     Dates: start: 20101022
  9. PROLIA [Suspect]
     Indication: OSTEOPOROSIS POSTMENOPAUSAL
     Dosage: 60 MG, Q6MO
     Route: 058
     Dates: start: 20110901
  10. PREDNISONE [Concomitant]
     Dosage: UNK
     Dates: start: 20120301
  11. OMEPRAZOLE [Concomitant]
     Dosage: 20 MG, QD
     Route: 048
     Dates: start: 20120706
  12. OXYCONTIN [Concomitant]
     Dosage: 60 MG, TID
     Route: 048
     Dates: start: 20120226
  13. FLEXERIL [Concomitant]
     Dosage: 10 MG, Q8H
     Route: 048
     Dates: start: 20110715
  14. IMITREX [Concomitant]
     Indication: MIGRAINE
     Dosage: UNK UNK, PRN
     Route: 058
     Dates: start: 20011024
  15. CLOTRIMAZOLE AF [Concomitant]
     Dosage: 1 %, BID
     Route: 061
     Dates: start: 20111021
  16. PEPCID [Concomitant]
     Dosage: 20 MG, BID
     Route: 048
     Dates: start: 20110406
  17. POTASSIUM CHLORIDE [Concomitant]
     Dosage: 20 MEQ, QD
     Route: 048
     Dates: start: 20101111
  18. VOLTAREN [Concomitant]
     Indication: OSTEOARTHRITIS
     Dosage: 1 %, QD
     Route: 061
     Dates: start: 20110615
  19. PRAMIPEXOLE DIHYCHLORIDE [Concomitant]
     Dosage: 0.5 MG, QD
     Dates: start: 20120706
  20. VITAMIN D [Concomitant]
     Dosage: 3000 IU, TID
     Dates: start: 20110714
  21. TOFRANIL [Concomitant]
     Indication: HEADACHE
     Dosage: 50 MG, QHS
     Route: 048
     Dates: start: 20110527
  22. KLONOPIN [Concomitant]
     Dosage: 2 MG, QHS
     Route: 048
     Dates: start: 20101111

REACTIONS (3)
  - EXPOSED BONE IN JAW [None]
  - TOOTH EXTRACTION [None]
  - TOOTH LOSS [None]
